FAERS Safety Report 22683924 (Version 2)
Quarter: 2024Q3

REPORT INFORMATION
  Report Type: Report from Study
  Country: EG (occurrence: EG)
  Receive Date: 20230708
  Receipt Date: 20240925
  Transmission Date: 20241016
  Serious: Yes (Hospitalization, Other)
  Sender: NOVARTIS
  Company Number: EG-002147023-NVSC2023EG150770

PATIENT
  Sex: Female

DRUGS (14)
  1. ENTRESTO [Suspect]
     Active Substance: SACUBITRIL\VALSARTAN
     Indication: Cardiac failure
     Dosage: UNK, BID
     Route: 048
     Dates: start: 2016
  2. ENTRESTO [Suspect]
     Active Substance: SACUBITRIL\VALSARTAN
     Dosage: 1 DOSAGE FORM, BID (50 MG)
     Route: 048
     Dates: start: 2016, end: 2022
  3. ENTRESTO [Suspect]
     Active Substance: SACUBITRIL\VALSARTAN
     Dosage: 1 DOSAGE FORM, BID (100 MG)
     Route: 048
     Dates: start: 2022
  4. ENTRESTO [Suspect]
     Active Substance: SACUBITRIL\VALSARTAN
     Dosage: 150 MG, OTHER (1TAB ENTRESTO 100 MG IN MORNING AND 50 MG EVENING)
     Route: 065
  5. ATORVASTATIN CALCIUM [Concomitant]
     Active Substance: ATORVASTATIN CALCIUM
     Indication: Blood triglycerides increased
     Dosage: UNK UNK, QD
     Route: 048
     Dates: start: 202305
  6. ATORVASTATIN CALCIUM\EZETIMIBE [Concomitant]
     Active Substance: ATORVASTATIN CALCIUM\EZETIMIBE
     Indication: Blood triglycerides increased
     Dosage: UNK UNK, QD (10/10)
     Route: 048
     Dates: start: 2016, end: 202305
  7. TORSEMIDE [Concomitant]
     Active Substance: TORSEMIDE
     Indication: Fluid retention
     Dosage: UNK UNK, QD
     Route: 048
     Dates: start: 2016
  8. PRADAXA [Concomitant]
     Active Substance: DABIGATRAN ETEXILATE MESYLATE
     Indication: Heart rate abnormal
     Dosage: UNK UNK, BID
     Route: 048
     Dates: start: 2016, end: 2022
  9. PRADAXA [Concomitant]
     Active Substance: DABIGATRAN ETEXILATE MESYLATE
     Indication: Anticoagulant therapy
  10. RIVAROXABAN [Concomitant]
     Active Substance: RIVAROXABAN
     Indication: Heart rate abnormal
     Dosage: UNK UNK, QD
     Route: 048
     Dates: start: 2022, end: 202305
  11. RIVAROXABAN [Concomitant]
     Active Substance: RIVAROXABAN
     Indication: Anticoagulant therapy
  12. ELIQUIS [Concomitant]
     Active Substance: APIXABAN
     Indication: Heart rate abnormal
     Dosage: UNK UNK, BID
     Route: 048
     Dates: start: 202305
  13. ELIQUIS [Concomitant]
     Active Substance: APIXABAN
     Indication: Anticoagulant therapy
  14. PLAVIX [Concomitant]
     Active Substance: CLOPIDOGREL BISULFATE
     Indication: Anticoagulant therapy
     Dosage: UNK UNK, QD
     Route: 048
     Dates: start: 2016

REACTIONS (5)
  - Anuria [Recovered/Resolved]
  - Pulmonary oedema [Recovered/Resolved]
  - Hypotension [Recovered/Resolved]
  - Ejection fraction decreased [Recovering/Resolving]
  - Off label use [Unknown]
